FAERS Safety Report 14572544 (Version 2)
Quarter: 2020Q3

REPORT INFORMATION
  Report Type: Spontaneous
  Country: US (occurrence: US)
  Receive Date: 20180226
  Receipt Date: 20200703
  Transmission Date: 20201102
  Serious: Yes (Hospitalization, Other)
  Sender: FDA-Public Use
  Company Number: US-GLENMARK PHARMACEUTICALS-2018GMK032495

PATIENT
  Age: 11 Year
  Sex: Male

DRUGS (8)
  1. DIDANOSINE. [Concomitant]
     Active Substance: DIDANOSINE
     Indication: PERINATAL HIV INFECTION
     Dosage: UNK
     Route: 065
  2. ABACAVIR. [Concomitant]
     Active Substance: ABACAVIR
     Indication: PERINATAL HIV INFECTION
     Dosage: UNK, BID
     Route: 065
  3. EPZICOM [Concomitant]
     Active Substance: ABACAVIR SULFATE\LAMIVUDINE
     Indication: PERINATAL HIV INFECTION
     Dosage: UNK, QD
     Route: 065
  4. ATAZANAVIR. [Concomitant]
     Active Substance: ATAZANAVIR
     Indication: PERINATAL HIV INFECTION
     Dosage: UNK
     Route: 065
  5. TRIAMCINOLONE ACETONIDE. [Suspect]
     Active Substance: TRIAMCINOLONE ACETONIDE
     Indication: ANALGESIC THERAPY
     Dosage: 40 MG, IN TOTAL
     Route: 014
  6. RITONAVIR. [Interacting]
     Active Substance: RITONAVIR
     Indication: PERINATAL HIV INFECTION
     Dosage: UNK
     Route: 065
  7. ABACAVIR SULFATE W/LAMIVUDINE [Concomitant]
     Active Substance: ABACAVIR\LAMIVUDINE
     Indication: PERINATAL HIV INFECTION
     Dosage: UNK, OD
     Route: 065
  8. RITONAVIR. [Concomitant]
     Active Substance: RITONAVIR
     Indication: PERINATAL HIV INFECTION
     Dosage: UNK
     Route: 065

REACTIONS (3)
  - Pituitary-dependent Cushing^s syndrome [Recovering/Resolving]
  - Drug interaction [Unknown]
  - Hypothalamic pituitary adrenal axis suppression [Recovering/Resolving]
